FAERS Safety Report 10128320 (Version 1)
Quarter: 2014Q2

REPORT INFORMATION
  Report Type: Spontaneous
  Country: US (occurrence: US)
  Receive Date: 20140428
  Receipt Date: 20140428
  Transmission Date: 20141212
  Serious: No
  Sender: FDA-Public Use
  Company Number: US-BIOGENIDEC-2014BI036397

PATIENT
  Age: 59 Year
  Sex: Female

DRUGS (1)
  1. TECFIDERA [Suspect]
     Indication: MULTIPLE SCLEROSIS
     Route: 048
     Dates: start: 20130603

REACTIONS (7)
  - Vomiting [Unknown]
  - Abdominal discomfort [Unknown]
  - Flushing [Unknown]
  - Erythema [Unknown]
  - Productive cough [Unknown]
  - Laryngitis [Unknown]
  - Pruritus [Unknown]
